FAERS Safety Report 5046569-8 (Version None)
Quarter: 2006Q2

REPORT INFORMATION
  Report Type: 
  Country: None (occurrence: None)
  Receive Date: 20060630
  Receipt Date: 20060620
  Transmission Date: 20061013
  Serious: Yes (Life-Threatening)
  Sender: FDA-Public Use
  Company Number: 224785

PATIENT
  Age: 39 Year
  Sex: Female

DRUGS (5)
  1. RITUXAN [Suspect]
     Indication: NON-HODGKIN'S LYMPHOMA
     Dosage: 630 MG, INTRAVENOUS
     Route: 042
     Dates: start: 20021126, end: 20021126
  2. FLUDARABINE [Concomitant]
  3. MITOXANTRONE [Concomitant]
  4. DEXAMETHASONE [Concomitant]
  5. NEUPOGEN [Concomitant]

REACTIONS (1)
  - ENDOMETRIAL CANCER [None]
